FAERS Safety Report 4543717-0 (Version None)
Quarter: 2004Q4

REPORT INFORMATION
  Report Type: 
  Country: None (occurrence: None)
  Receive Date: 20041229
  Receipt Date: 20041229
  Transmission Date: 20050328
  Serious: Yes (Other)
  Sender: FDA-Public Use
  Company Number: None

PATIENT
  Age: 33 Year
  Sex: Female
  Weight: 92 kg

DRUGS (2)
  1. ACETAMINOPHEN [Suspect]
  2. ALLEGRA [Concomitant]

REACTIONS (1)
  - URTICARIA [None]
